FAERS Safety Report 15432325 (Version 2)
Quarter: 2019Q1

REPORT INFORMATION
  Report Type: Report from Study
  Country: CO (occurrence: CO)
  Receive Date: 20180926
  Receipt Date: 20190102
  Transmission Date: 20190417
  Serious: Yes (Hospitalization, Other)
  Sender: FDA-Public Use
  Company Number: CO-BRISTOL-MYERS SQUIBB COMPANY-BMS-2018-084920

PATIENT
  Age: 62 Year
  Sex: Female

DRUGS (1)
  1. ABATACEPT [Suspect]
     Active Substance: ABATACEPT
     Indication: RHEUMATOID ARTHRITIS
     Dosage: 500 MG, QMO
     Route: 042
     Dates: start: 20180323

REACTIONS (4)
  - Platelet count decreased [Unknown]
  - Gallbladder disorder [Recovering/Resolving]
  - Varicella [Recovered/Resolved]
  - Smallpox [Unknown]

NARRATIVE: CASE EVENT DATE: 20180731
